FAERS Safety Report 8175242-2 (Version None)
Quarter: 2012Q1

REPORT INFORMATION
  Report Type: 
  Country: None (occurrence: None)
  Receive Date: 20120229
  Receipt Date: 20120223
  Transmission Date: 20120608
  Serious: Yes (Death, Life-Threatening, Hospitalization, Other)
  Sender: FDA-Public Use
  Company Number: JP-PFIZER INC-2011266042

PATIENT
  Age: 71 Year
  Sex: Female
  Weight: 45 kg

DRUGS (9)
  1. GASLON [Suspect]
     Dosage: UNK
     Route: 048
     Dates: start: 20110726, end: 20110810
  2. OXATOMIDE [Concomitant]
     Dosage: UNK
     Route: 048
     Dates: start: 19930101, end: 20110810
  3. GLYCYRON [Concomitant]
     Dosage: UNK
     Route: 048
     Dates: start: 19930101, end: 20110810
  4. CELESTAMINE TAB [Concomitant]
     Dosage: UNK
     Dates: start: 19930101, end: 20110810
  5. ASCOMP [Concomitant]
     Dosage: UNK
     Route: 048
     Dates: end: 20110810
  6. LIPITOR [Concomitant]
     Dosage: 10 MG, UNK
     Dates: start: 19930101, end: 20110810
  7. NORVASC [Concomitant]
     Dosage: UNK
     Route: 048
     Dates: start: 19930101, end: 20110810
  8. CINAL [Concomitant]
     Dosage: UNK
     Route: 048
     Dates: end: 20110810
  9. CELECOXIB [Suspect]
     Indication: BACK PAIN
     Dosage: 100 MG, UNK
     Route: 048
     Dates: start: 20110726, end: 20110810

REACTIONS (10)
  - RENAL DISORDER [None]
  - PANCREATITIS ACUTE [None]
  - TOXIC EPIDERMAL NECROLYSIS [None]
  - RESPIRATORY FAILURE [None]
  - ABSCESS [None]
  - DISSEMINATED INTRAVASCULAR COAGULATION [None]
  - SEPSIS [None]
  - LIVER DISORDER [None]
  - PNEUMONIA ASPIRATION [None]
  - BLOOD PRESSURE DECREASED [None]
